FAERS Safety Report 7801317-0 (Version None)
Quarter: 2011Q4

REPORT INFORMATION
  Report Type: 
  Country: None (occurrence: None)
  Receive Date: 20111006
  Receipt Date: 20111006
  Transmission Date: 20120403
  Serious: Yes (Hospitalization)
  Sender: FDA-Public Use
  Company Number: None

PATIENT
  Age: 52 Year
  Sex: Male
  Weight: 121.7 kg

DRUGS (6)
  1. VIT D [Concomitant]
  2. OXYCODONE HCL [Concomitant]
  3. IBUPROFEN [Suspect]
     Indication: OSTEOARTHRITIS
     Dosage: 800MG Q8HRS PRN PO CHRONIC
     Route: 048
  4. NORVASC [Concomitant]
  5. NEXIUM [Concomitant]
  6. DOCUSATE [Concomitant]

REACTIONS (4)
  - DUODENAL ULCER [None]
  - HYPOTENSION [None]
  - TACHYCARDIA [None]
  - GASTROINTESTINAL HAEMORRHAGE [None]
